FAERS Safety Report 9353914 (Version 3)
Quarter: 2013Q3

REPORT INFORMATION
  Report Type: Spontaneous
  Country: US (occurrence: US)
  Receive Date: 20130618
  Receipt Date: 20130709
  Transmission Date: 20140515
  Serious: Yes (Hospitalization)
  Sender: FDA-Public Use
  Company Number: US-GILEAD-2013-0077180

PATIENT
  Sex: Female

DRUGS (3)
  1. LETAIRIS [Suspect]
     Indication: PULMONARY ARTERIAL HYPERTENSION
     Dosage: 10 MG, QD
     Dates: start: 20120615
  2. LETAIRIS [Suspect]
     Indication: PULMONARY HYPERTENSION
  3. COUMADIN                           /00014802/ [Concomitant]

REACTIONS (1)
  - Pneumonia [Unknown]
